APPROVED DRUG PRODUCT: TRAZODONE HYDROCHLORIDE
Active Ingredient: TRAZODONE HYDROCHLORIDE
Strength: 100MG
Dosage Form/Route: TABLET;ORAL
Application: A071196 | Product #001 | TE Code: AB
Applicant: APOTEX INC
Approved: Mar 25, 1987 | RLD: No | RS: Yes | Type: RX